FAERS Safety Report 23768240 (Version 1)
Quarter: 2024Q2

REPORT INFORMATION
  Report Type: Spontaneous
  Country: US (occurrence: None)
  Receive Date: 20240419
  Receipt Date: 20240419
  Transmission Date: 20240716
  Serious: Yes (Death)
  Sender: FDA-Public Use
  Company Number: None

PATIENT
  Age: 70 Year
  Sex: Female
  Weight: 62.55 kg

DRUGS (3)
  1. LENVIMA [Suspect]
     Active Substance: LENVATINIB
     Indication: Sarcoma uterus
     Dosage: FREQUENCY : DAILY;?
     Route: 048
     Dates: start: 20240326, end: 20240405
  2. KEYTRUDA [Concomitant]
     Active Substance: PEMBROLIZUMAB
  3. LIPITOR [Concomitant]
     Active Substance: ATORVASTATIN CALCIUM

REACTIONS (16)
  - Loss of consciousness [None]
  - Diarrhoea [None]
  - Cough [None]
  - Infusion related reaction [None]
  - Vision blurred [None]
  - Asthenia [None]
  - Decreased appetite [None]
  - Thirst [None]
  - Weight decreased [None]
  - Loss of personal independence in daily activities [None]
  - Hypersomnia [None]
  - Respiratory rate increased [None]
  - Incontinence [None]
  - Blood pressure decreased [None]
  - Heart rate decreased [None]
  - Respiratory arrest [None]

NARRATIVE: CASE EVENT DATE: 20240406
